FAERS Safety Report 16032438 (Version 1)
Quarter: 2019Q1

REPORT INFORMATION
  Report Type: Spontaneous
  Country: GB (occurrence: GB)
  Receive Date: 20190304
  Receipt Date: 20190304
  Transmission Date: 20190418
  Serious: Yes (Other)
  Sender: FDA-Public Use
  Company Number: PHHY2019GB046916

PATIENT
  Age: 3 Year
  Sex: Male
  Weight: 16 kg

DRUGS (2)
  1. MAXIDEX [Suspect]
     Active Substance: DEXAMETHASONE
     Indication: IRITIS
     Dosage: 1 GTT, QID WITH DECREASING DOSE
     Route: 063
  2. MYDRILATE [Suspect]
     Active Substance: CYCLOPENTOLATE HYDROCHLORIDE
     Indication: IRITIS
     Dosage: 3 GTT, QD
     Route: 063
     Dates: start: 20190126, end: 20190207

REACTIONS (4)
  - Abdominal pain [Unknown]
  - Psychomotor hyperactivity [Unknown]
  - Vomiting [Unknown]
  - Maternal exposure during breast feeding [Unknown]

NARRATIVE: CASE EVENT DATE: 20190127
